FAERS Safety Report 7547610-0 (Version None)
Quarter: 2011Q2

REPORT INFORMATION
  Report Type: 
  Country: None (occurrence: None)
  Receive Date: 20110614
  Receipt Date: 20110218
  Transmission Date: 20111010
  Serious: No
  Sender: FDA-Public Use
  Company Number: US-ALLERGAN-1102466US

PATIENT
  Age: 41 Year
  Sex: Female

DRUGS (3)
  1. DIFFERIN [Concomitant]
     Indication: ACNE
  2. DUAC                               /01555701/ [Concomitant]
     Indication: ACNE
  3. ACZONE [Suspect]
     Indication: ACNE
     Dosage: 1 DF, BID
     Route: 061
     Dates: end: 20110217

REACTIONS (2)
  - OROPHARYNGEAL PAIN [None]
  - THROAT IRRITATION [None]
